FAERS Safety Report 4907164-1 (Version None)
Quarter: 2006Q1

REPORT INFORMATION
  Report Type: 
  Country: None (occurrence: None)
  Receive Date: 20060206
  Receipt Date: 20050215
  Transmission Date: 20060701
  Serious: Yes (Life-Threatening, Hospitalization)
  Sender: FDA-Public Use
  Company Number: 02100-JPN-05-0055

PATIENT
  Age: 57 Year
  Sex: Male

DRUGS (3)
  1. CILOSTAZOL [Suspect]
     Indication: ANGINA PECTORIS
     Dosage: 100 MG ORAL
     Route: 048
     Dates: start: 20030101, end: 20050129
  2. VERAPAMIL HYDROCHLORIDE [Concomitant]
  3. NICORANDIL [Concomitant]

REACTIONS (6)
  - ASPIRATION [None]
  - BRONCHITIS CHRONIC [None]
  - HAEMOPTYSIS [None]
  - HAEMORRHAGE [None]
  - HYPOXIA [None]
  - RESPIRATORY FAILURE [None]
